APPROVED DRUG PRODUCT: NEURAMATE
Active Ingredient: MEPROBAMATE
Strength: 400MG
Dosage Form/Route: TABLET;ORAL
Application: N014359 | Product #001
Applicant: HALSEY DRUG CO INC
Approved: Approved Prior to Jan 1, 1982 | RLD: No | RS: No | Type: DISCN